FAERS Safety Report 6925954-0 (Version None)
Quarter: 2010Q3

REPORT INFORMATION
  Report Type: 
  Country: None (occurrence: None)
  Receive Date: 20100816
  Receipt Date: 20100806
  Transmission Date: 20110219
  Serious: Yes (Death)
  Sender: FDA-Public Use
  Company Number: PE-PFIZER INC-2010099173

PATIENT
  Age: 90 Year

DRUGS (2)
  1. LIPITOR [Suspect]
     Indication: DYSLIPIDAEMIA
     Dosage: 20 MG, 1X/DAY
     Route: 048
     Dates: start: 20040101, end: 20100601
  2. NITROGLYCERIN [Concomitant]

REACTIONS (1)
  - DEATH [None]
